FAERS Safety Report 21793794 (Version 3)
Quarter: 2022Q4

REPORT INFORMATION
  Report Type: Report from Study
  Country: CA (occurrence: CA)
  Receive Date: 20221229
  Receipt Date: 20221230
  Transmission Date: 20230113
  Serious: Yes (Other)
  Sender: FDA-Public Use
  Company Number: CA-VER-202200671

PATIENT
  Age: 66 Year
  Sex: Male

DRUGS (2)
  1. TRIPTORELIN PAMOATE [Suspect]
     Active Substance: TRIPTORELIN PAMOATE
     Indication: Prostate cancer
     Dosage: (11.25 MG,3 M)
     Route: 030
     Dates: start: 20220908, end: 20220908
  2. TRIPTORELIN PAMOATE [Suspect]
     Active Substance: TRIPTORELIN PAMOATE
     Indication: Prostate cancer
     Dosage: (11.25 MG,3 M)
     Route: 030
     Dates: start: 20221208, end: 20221208

REACTIONS (2)
  - Benign ear neoplasm [Unknown]
  - Deafness unilateral [Unknown]
